FAERS Safety Report 9378731 (Version 2)
Quarter: 2013Q3

REPORT INFORMATION
  Report Type: Spontaneous
  Country: US (occurrence: US)
  Receive Date: 20130702
  Receipt Date: 20130723
  Transmission Date: 20140515
  Serious: Yes (Hospitalization)
  Sender: FDA-Public Use
  Company Number: US-BIOGENIDEC-2013BI056042

PATIENT
  Sex: Male

DRUGS (4)
  1. TYSABRI [Suspect]
     Indication: CROHN^S DISEASE
     Route: 042
     Dates: start: 20120103
  2. CALTRATE [Concomitant]
  3. DICYCLOMINE [Concomitant]
  4. LORATADINE [Concomitant]

REACTIONS (2)
  - Spondylitis [Unknown]
  - Small intestinal stenosis [Recovered/Resolved]
